FAERS Safety Report 4609826-2 (Version None)
Quarter: 2005Q1

REPORT INFORMATION
  Report Type: 
  Country: None (occurrence: None)
  Receive Date: 20050316
  Receipt Date: 20050307
  Transmission Date: 20050727
  Serious: Yes (Death, Life-Threatening, Hospitalization)
  Sender: FDA-Public Use
  Company Number: 200512138GDDC

PATIENT
  Age: 61 Year
  Sex: Male

DRUGS (2)
  1. KETEK [Suspect]
     Indication: PNEUMONIA
     Route: 048
     Dates: start: 20050101, end: 20050101
  2. ANTIBIOTICS [Concomitant]
     Indication: PNEUMONIA
     Dosage: DOSE: UNK

REACTIONS (6)
  - ARRHYTHMIA [None]
  - CARDIAC ARREST [None]
  - EJECTION FRACTION DECREASED [None]
  - HEART RATE IRREGULAR [None]
  - PULMONARY OEDEMA [None]
  - TACHYCARDIA [None]
